FAERS Safety Report 4536747-6 (Version None)
Quarter: 2004Q4

REPORT INFORMATION
  Report Type: 
  Country: None (occurrence: None)
  Receive Date: 20041223
  Receipt Date: 20041213
  Transmission Date: 20050328
  Serious: Yes (Death)
  Sender: FDA-Public Use
  Company Number: US-JNJFOC-20040902232

PATIENT
  Sex: Female

DRUGS (11)
  1. REMINYL [Suspect]
     Indication: DRUG USE FOR UNKNOWN INDICATION
  2. PLAVIX [Concomitant]
     Route: 049
  3. LIPITOR [Concomitant]
     Route: 049
  4. PREVACID [Concomitant]
     Route: 049
  5. COREG [Concomitant]
     Route: 049
  6. ZOLOFT [Concomitant]
     Route: 049
  7. SYNTHROID [Concomitant]
     Route: 049
  8. TORECAN [Concomitant]
  9. LACTOLOSE [Concomitant]
  10. ASPIRIN [Concomitant]
  11. LOVENOX [Concomitant]

REACTIONS (14)
  - AMMONIA INCREASED [None]
  - ASPARTATE AMINOTRANSFERASE INCREASED [None]
  - ASPIRATION [None]
  - AZOTAEMIA [None]
  - BLOOD URINE PRESENT [None]
  - CARDIAC FAILURE [None]
  - CONSCIOUSNESS FLUCTUATING [None]
  - ENCEPHALOPATHY [None]
  - HEPATIC ENCEPHALOPATHY [None]
  - METABOLIC DISORDER [None]
  - OEDEMA PERIPHERAL [None]
  - PNEUMONIA [None]
  - RENAL FAILURE [None]
  - SEPSIS [None]
